FAERS Safety Report 25108755 (Version 2)
Quarter: 2025Q2

REPORT INFORMATION
  Report Type: Report from Study
  Country: PY (occurrence: PY)
  Receive Date: 20250322
  Receipt Date: 20250411
  Transmission Date: 20250717
  Serious: Yes (Other)
  Sender: ROCHE
  Company Number: PY-ROCHE-10000238210

PATIENT
  Age: 62 Year
  Sex: Female

DRUGS (8)
  1. ACTEMRA [Suspect]
     Active Substance: TOCILIZUMAB
     Indication: Rheumatoid arthritis
     Dosage: DOSE: 162MG/0,9ML?TOCILIZUMAB
     Route: 058
     Dates: start: 20230403
  2. PREDNISONE [Concomitant]
     Active Substance: PREDNISONE
  3. LEFLUNOMIDE [Concomitant]
     Active Substance: LEFLUNOMIDE
  4. OLMESARTAN [Concomitant]
     Active Substance: OLMESARTAN
  5. INDAPAMIDE [Concomitant]
     Active Substance: INDAPAMIDE
  6. LERCANIDIPINE [Concomitant]
     Active Substance: LERCANIDIPINE
  7. NEBIVOLOL [Concomitant]
     Active Substance: NEBIVOLOL
  8. NINTEDANIB [Concomitant]
     Active Substance: NINTEDANIB

REACTIONS (3)
  - Pulmonary fibrosis [Recovering/Resolving]
  - Respiratory tract infection bacterial [Recovering/Resolving]
  - Stress [Unknown]

NARRATIVE: CASE EVENT DATE: 20241101
